FAERS Safety Report 11356264 (Version 2)
Quarter: 2015Q3

REPORT INFORMATION
  Report Type: Spontaneous
  Country: US (occurrence: US)
  Receive Date: 20150807
  Receipt Date: 20150930
  Transmission Date: 20151125
  Serious: No
  Sender: FDA-Public Use
  Company Number: US-PFIZER INC-2015260034

PATIENT
  Age: 70 Year
  Sex: Female
  Weight: 68 kg

DRUGS (5)
  1. VITAMIN B12 [Concomitant]
     Active Substance: CYANOCOBALAMIN
     Dosage: 2000 ONCE A DAY
     Route: 048
  2. COZAAR [Concomitant]
     Active Substance: LOSARTAN POTASSIUM
     Indication: HYPERTENSION
     Dosage: 25 MG, 1X/DAY
     Route: 048
  3. CLEOCIN [Suspect]
     Active Substance: CLINDAMYCIN PHOSPHATE
     Indication: VAGINAL INFECTION
     Dosage: 100MG, ONE OVULE AT BEDTIME FOR THREE DAYS
     Route: 067
     Dates: start: 20150731, end: 20150802
  4. HYDROCHLOROTHIAZIDE. [Concomitant]
     Active Substance: HYDROCHLOROTHIAZIDE
     Indication: DIURETIC THERAPY
     Dosage: 25 MG BY MOUTH ONCE A DAY, WATER PILL
     Route: 048
  5. VITAMIN D [Concomitant]
     Active Substance: CHOLECALCIFEROL
     Indication: HYPOVITAMINOSIS
     Dosage: 4000 ONCE A DAY
     Route: 048

REACTIONS (3)
  - Product quality issue [Unknown]
  - Circumstance or information capable of leading to medication error [Unknown]
  - Application site pain [Unknown]

NARRATIVE: CASE EVENT DATE: 20150801
